FAERS Safety Report 7876710-0 (Version None)
Quarter: 2011Q4

REPORT INFORMATION
  Report Type: 
  Country: None (occurrence: None)
  Receive Date: 20111031
  Receipt Date: 20111021
  Transmission Date: 20120403
  Serious: Yes (Other)
  Sender: FDA-Public Use
  Company Number: AU-ASTRAZENECA-2011SE64636

PATIENT
  Age: 33 Year
  Sex: Female
  Weight: 65 kg

DRUGS (1)
  1. MARCAINE HCL [Suspect]
     Indication: SPINAL ANAESTHESIA
     Dosage: 2-3 ML
     Route: 037
     Dates: start: 20111003, end: 20111003

REACTIONS (3)
  - HYPOAESTHESIA [None]
  - DRUG INEFFECTIVE [None]
  - FEELING HOT [None]
